FAERS Safety Report 4285476-5 (Version None)
Quarter: 2004Q1

REPORT INFORMATION
  Report Type: 
  Country: None (occurrence: None)
  Receive Date: 20040202
  Receipt Date: 20040122
  Transmission Date: 20041129
  Serious: Yes (Hospitalization)
  Sender: FDA-Public Use
  Company Number: MK200401-0267-1

PATIENT
  Age: 61 Year
  Sex: Female

DRUGS (3)
  1. METHADONE HCL [Suspect]
     Indication: PAIN
     Dosage: 700MG, DAILY
  2. SERTRALINE HCL [Concomitant]
  3. GABAPENTIN [Concomitant]

REACTIONS (16)
  - ACUTE RESPIRATORY DISTRESS SYNDROME [None]
  - BLOOD ALBUMIN DECREASED [None]
  - BLOOD ALKALINE PHOSPHATASE INCREASED [None]
  - BLOOD PRESSURE INCREASED [None]
  - CREPITATIONS [None]
  - EJECTION FRACTION DECREASED [None]
  - ELECTROCARDIOGRAM QT PROLONGED [None]
  - HAEMOGLOBIN DECREASED [None]
  - HEART RATE INCREASED [None]
  - MITRAL VALVE INCOMPETENCE [None]
  - PULMONARY OEDEMA [None]
  - SECONDARY HYPERTENSION [None]
  - TORSADE DE POINTES [None]
  - VENTRICULAR DYSFUNCTION [None]
  - VENTRICULAR TACHYCARDIA [None]
  - WHITE BLOOD CELL COUNT INCREASED [None]
